FAERS Safety Report 11999974 (Version 1)
Quarter: 2016Q1

REPORT INFORMATION
  Report Type: Spontaneous
  Country: IT (occurrence: IT)
  Receive Date: 20160204
  Receipt Date: 20160204
  Transmission Date: 20160526
  Serious: Yes (Other)
  Sender: FDA-Public Use
  Company Number: PHHY2016IT014098

PATIENT
  Age: 49 Year
  Sex: Male

DRUGS (2)
  1. ESOMEPRAZOLE [Concomitant]
     Active Substance: ESOMEPRAZOLE
     Indication: PRODUCT USED FOR UNKNOWN INDICATION
     Dosage: UNK
     Route: 065
  2. TOLEP [Suspect]
     Active Substance: OXCARBAZEPINE
     Indication: ANXIETY
     Dosage: 10 IU, UNK
     Route: 048
     Dates: start: 20150119, end: 20150119

REACTIONS (3)
  - Product use issue [Unknown]
  - Drug abuse [Unknown]
  - Balance disorder [Unknown]

NARRATIVE: CASE EVENT DATE: 20150119
